FAERS Safety Report 7896985-1 (Version None)
Quarter: 2011Q4

REPORT INFORMATION
  Report Type: 
  Country: None (occurrence: None)
  Receive Date: 20111107
  Receipt Date: 20111101
  Transmission Date: 20120403
  Serious: No
  Sender: FDA-Public Use
  Company Number: US-PFIZER INC-2011236525

PATIENT
  Sex: Male
  Weight: 98 kg

DRUGS (10)
  1. PRADAXA [Concomitant]
     Indication: ATRIAL FIBRILLATION
  2. ASPIRIN [Concomitant]
     Dosage: 81 MG, 1X/DAY
  3. MICARDIS [Concomitant]
     Indication: HYPERTENSION
     Dosage: 80 MG, DAILY
  4. ATENOLOL [Concomitant]
     Indication: HYPERTENSION
     Dosage: 25 MG, 2X/DAY
  5. TIKOSYN [Suspect]
     Indication: ATRIAL FIBRILLATION
     Dosage: 500 UG, 2X/DAY
     Route: 048
     Dates: start: 20110922
  6. PRADAXA [Concomitant]
     Indication: ANTICOAGULANT THERAPY
     Dosage: 150 MG, 2X/DAY
  7. CRESTOR [Concomitant]
     Indication: BLOOD CHOLESTEROL ABNORMAL
     Dosage: 20 MG, DAILY
  8. ATENOLOL [Concomitant]
     Indication: ATRIAL FIBRILLATION
  9. AMLODIPINE [Concomitant]
     Indication: HYPERTENSION
     Dosage: 5 MG, DAILY
  10. PREDNISONE [Concomitant]
     Dosage: 10 MG, AS NEEDED

REACTIONS (2)
  - NIGHT SWEATS [None]
  - NECK PAIN [None]
